FAERS Safety Report 5466620-0 (Version None)
Quarter: 2007Q3

REPORT INFORMATION
  Report Type: 
  Country: None (occurrence: None)
  Receive Date: 20070925
  Receipt Date: 20070917
  Transmission Date: 20080115
  Serious: Yes (Hospitalization, Other)
  Sender: FDA-Public Use
  Company Number: PHEH2007US12489

PATIENT
  Age: 77 Year
  Sex: Male
  Weight: 87.981 kg

DRUGS (5)
  1. DIOVAN HCT [Suspect]
     Indication: HYPERTENSION
     Dosage: 160MG VAL/12.5MG HCT, QD
     Route: 048
     Dates: start: 20010924, end: 20030520
  2. DIOVAN HCT [Suspect]
     Dosage: 320MG VAL, UNK MG HCT, QD
     Route: 048
     Dates: start: 20030520
  3. DIOVAN [Suspect]
     Indication: HYPERTENSION
     Dosage: UNK, UNK
     Dates: start: 20070801, end: 20070901
  4. POTASSIUM CHLORIDE [Concomitant]
     Dosage: 10 MEQ, QD
     Dates: start: 20070801
  5. HYDROCHLOROTHIAZIDE [Concomitant]
     Dosage: 25 MG, QD

REACTIONS (16)
  - ANAEMIA [None]
  - BLOOD CREATININE INCREASED [None]
  - BLOOD GLUCOSE INCREASED [None]
  - BLOOD UREA INCREASED [None]
  - CELLULITIS [None]
  - COMPLEMENT FACTOR C3 DECREASED [None]
  - CONDITION AGGRAVATED [None]
  - HAEMATOCRIT DECREASED [None]
  - HAEMOGLOBIN DECREASED [None]
  - HYPERKALAEMIA [None]
  - HYPOTENSION [None]
  - PITTING OEDEMA [None]
  - RENAL CYST [None]
  - RENAL FAILURE ACUTE [None]
  - RENAL SCAN ABNORMAL [None]
  - SKIN ULCER [None]
